FAERS Safety Report 7400227-0 (Version None)
Quarter: 2011Q2

REPORT INFORMATION
  Report Type: 
  Country: None (occurrence: None)
  Receive Date: 20110405
  Receipt Date: 20110405
  Transmission Date: 20111010
  Serious: Yes (Other)
  Sender: FDA-Public Use
  Company Number: None

PATIENT
  Age: 73 Year
  Sex: Male
  Weight: 95.2554 kg

DRUGS (1)
  1. ISOSORBIDE MONONITRATE [Suspect]
     Indication: CHEST DISCOMFORT
     Dosage: 1 TABLET 30 MGTAB 1 TABLET DAILY PO
     Route: 048
     Dates: start: 20110329, end: 20110403

REACTIONS (2)
  - HEADACHE [None]
  - NO THERAPEUTIC RESPONSE [None]
